FAERS Safety Report 12685433 (Version 3)
Quarter: 2019Q4

REPORT INFORMATION
  Report Type: Spontaneous
  Country: US (occurrence: US)
  Receive Date: 20160825
  Receipt Date: 20191022
  Transmission Date: 20200122
  Serious: Yes (Death, Other)
  Sender: FDA-Public Use
  Company Number: US-PFIZER INC-2016401618

PATIENT
  Age: 68 Year
  Sex: Male

DRUGS (2)
  1. VIAGRA [Suspect]
     Active Substance: SILDENAFIL CITRATE
     Indication: ERECTILE DYSFUNCTION
     Dosage: 50-100 MG AS NEEDED
     Route: 048
     Dates: start: 200506, end: 201404
  2. LEVITRA [Concomitant]
     Active Substance: VARDENAFIL HYDROCHLORIDE
     Indication: ERECTILE DYSFUNCTION
     Dosage: 20 MG, UNK
     Dates: start: 20140428, end: 2014

REACTIONS (4)
  - Metastatic malignant melanoma [Unknown]
  - Tumour haemorrhage [Unknown]
  - Hepatocellular carcinoma [Fatal]
  - Malignant melanoma in situ [Unknown]

NARRATIVE: CASE EVENT DATE: 20070605
